FAERS Safety Report 17875960 (Version 1)
Quarter: 2020Q2

REPORT INFORMATION
  Report Type: Spontaneous
  Country: FR (occurrence: FR)
  Receive Date: 20200609
  Receipt Date: 20200609
  Transmission Date: 20200714
  Serious: Yes (Hospitalization)
  Sender: FDA-Public Use
  Company Number: FR-TEVA-2020-FR-1246159

PATIENT
  Age: 58 Year
  Sex: Male
  Weight: 40 kg

DRUGS (8)
  1. TRANXENE [Interacting]
     Active Substance: CLORAZEPATE DIPOTASSIUM
     Indication: WRONG PATIENT RECEIVED PRODUCT
     Dosage: 1 DOSAGE FORMS
     Route: 048
     Dates: start: 20200328, end: 20200328
  2. LORMETAZEPAM [Concomitant]
     Active Substance: LORMETAZEPAM
     Dosage: NOT ADMINISTERED
     Route: 048
  3. PIPAMPERONE BASE [Interacting]
     Active Substance: PIPAMPERONE
     Indication: WRONG PATIENT RECEIVED PRODUCT
     Dosage: 40 MG
     Route: 048
     Dates: start: 20200328, end: 20200328
  4. OLANZAPINE RATIOPHARM 5 MG COMPRIME [Suspect]
     Active Substance: OLANZAPINE
     Indication: WRONG PATIENT RECEIVED PRODUCT
     Dosage: 1 DOSAGE FORMS
     Route: 048
     Dates: start: 20200328, end: 20200328
  5. ESOMEPRAZOLE. [Concomitant]
     Active Substance: ESOMEPRAZOLE MAGNESIUM
     Dosage: 40 MG
     Route: 048
  6. VALPROMIDE [Interacting]
     Active Substance: VALPROMIDE
     Indication: WRONG PATIENT RECEIVED PRODUCT
     Dosage: 300 MG
     Route: 048
     Dates: start: 20200328, end: 20200328
  7. FINASTERIDE ACCORD 5 MG, COMPRIM? PELLICUL? [Concomitant]
     Indication: WRONG PATIENT RECEIVED PRODUCT
     Dosage: 1 DOSAGE FORMS
     Route: 048
     Dates: start: 20200328, end: 20200328
  8. TAMSULOSINE ZENTIVA LP 0,4 MG, G?LULE ? LIB?RATION PROLONG?E [Concomitant]
     Indication: WRONG PATIENT RECEIVED PRODUCT
     Dosage: 1 DOSAGE FORM
     Route: 048
     Dates: start: 20200328, end: 20200328

REACTIONS (5)
  - Somnolence [Recovered/Resolved]
  - Hypothermia [Recovered/Resolved]
  - Drug interaction [Unknown]
  - Hypotension [Recovered/Resolved]
  - Wrong patient received product [Recovered/Resolved]

NARRATIVE: CASE EVENT DATE: 20200328
